FAERS Safety Report 25901331 (Version 1)
Quarter: 2025Q4

REPORT INFORMATION
  Report Type: Spontaneous
  Country: US (occurrence: None)
  Receive Date: 20251009
  Receipt Date: 20251009
  Transmission Date: 20260117
  Serious: Yes (Other)
  Sender: ALKERMES
  Company Number: US-ALKERMES INC.-ALK-2025-002680

PATIENT
  Age: 53 Year
  Sex: Female

DRUGS (2)
  1. VIVITROL [Suspect]
     Active Substance: NALTREXONE
     Indication: Alcoholism
     Dosage: 380 MILLIGRAM, QMO
  2. VIVITROL [Suspect]
     Active Substance: NALTREXONE
     Indication: Alcohol use disorder

REACTIONS (2)
  - Intestinal dilatation [Unknown]
  - Small intestinal obstruction [Unknown]

NARRATIVE: CASE EVENT DATE: 20241201
